FAERS Safety Report 12422846 (Version 1)
Quarter: 2016Q2

REPORT INFORMATION
  Report Type: Spontaneous
  Country: US (occurrence: None)
  Receive Date: 20160531
  Receipt Date: 20160531
  Transmission Date: 20160815
  Serious: No
  Sender: FDA-Public Use
  Company Number: None

PATIENT
  Age: 27 Year
  Sex: Female
  Weight: 47.17 kg

DRUGS (1)
  1. AMOXICILLIN. [Suspect]
     Active Substance: AMOXICILLIN
     Indication: WISDOM TEETH REMOVAL
     Dosage: 28 CAPSULE(S) EVERY 6 HOURS TAKEN BY MOUTH
     Route: 048
     Dates: start: 20160527, end: 20160530

REACTIONS (1)
  - Rash generalised [None]

NARRATIVE: CASE EVENT DATE: 20160528
